FAERS Safety Report 25750867 (Version 1)
Quarter: 2025Q3

REPORT INFORMATION
  Report Type: Spontaneous
  Country: US (occurrence: None)
  Receive Date: 20250829
  Receipt Date: 20250829
  Transmission Date: 20251020
  Serious: Yes (Hospitalization)
  Sender: FDA-CTU
  Company Number: None

PATIENT
  Age: 54 Year
  Sex: Male

DRUGS (21)
  1. TACROLIMUS [Suspect]
     Active Substance: TACROLIMUS
     Indication: Lung transplant
     Dosage: 5 MG DAILY ORAL ?
     Route: 048
     Dates: start: 20250701
  2. MYCOPHENOLATE MOFETIL [Suspect]
     Active Substance: MYCOPHENOLATE MOFETIL
     Indication: Lung transplant
     Dosage: 1000 MG TWICE A DAY ORAL
     Route: 048
     Dates: start: 20250701
  3. ACETAMINOPHEN [Concomitant]
     Active Substance: ACETAMINOPHEN
  4. ASPIRIN [Concomitant]
     Active Substance: ASPIRIN
  5. CALCIUM CITRATE\VITAMIN D [Concomitant]
     Active Substance: CALCIUM CITRATE\VITAMIN D
  6. DOXYCYCLINE [Concomitant]
     Active Substance: DOXYCYCLINE
  7. FLUCONAZOLE [Concomitant]
     Active Substance: FLUCONAZOLE
  8. MAGNESIUM OXIDE [Concomitant]
     Active Substance: MAGNESIUM OXIDE
  9. VALGANCICLOVIR [Concomitant]
     Active Substance: VALGANCICLOVIR
  10. BACTRIM [Concomitant]
     Active Substance: SULFAMETHOXAZOLE\TRIMETHOPRIM
  11. TACROLIMUS [Concomitant]
     Active Substance: TACROLIMUS
  12. SERTRALINE [Concomitant]
     Active Substance: SERTRALINE HYDROCHLORIDE
  13. ROSUVASTATIN [Concomitant]
     Active Substance: ROSUVASTATIN
  14. PREDNISONE [Concomitant]
     Active Substance: PREDNISONE
  15. RANOLAZINE [Concomitant]
     Active Substance: RANOLAZINE
  16. PREVYMIS [Concomitant]
     Active Substance: LETERMOVIR
  17. OMEPRAZOLE [Concomitant]
     Active Substance: OMEPRAZOLE
  18. NOVOLIN N [Concomitant]
     Active Substance: INSULIN HUMAN
  19. MIRTAZAPINE [Concomitant]
     Active Substance: MIRTAZAPINE
  20. METOPROLOL SUCCINATE [Concomitant]
     Active Substance: METOPROLOL SUCCINATE
  21. MELATONIN [Concomitant]
     Active Substance: MELATONIN

REACTIONS (5)
  - Weight increased [None]
  - Fluid retention [None]
  - Pneumonia [None]
  - Thrombosis [None]
  - Pulmonary thrombosis [None]

NARRATIVE: CASE EVENT DATE: 20250815
